FAERS Safety Report 9018849 (Version 1)
Quarter: 2013Q1

REPORT INFORMATION
  Report Type: Spontaneous
  Country: JP (occurrence: JP)
  Receive Date: 20130118
  Receipt Date: 20130118
  Transmission Date: 20140127
  Serious: Yes (Other)
  Sender: FDA-Public Use
  Company Number: PHHY2012JP108885

PATIENT
  Age: 72 Year
  Sex: Male

DRUGS (2)
  1. TASIGNA [Suspect]
     Indication: CHRONIC MYELOID LEUKAEMIA
     Dosage: 800 MG, DAILY
     Route: 048
     Dates: start: 201107
  2. DIGOXIN [Suspect]
     Indication: SUBDURAL HAEMATOMA
     Dosage: 1 MG, UNK
     Route: 048
     Dates: start: 201211

REACTIONS (2)
  - Subdural haematoma [Unknown]
  - Headache [Recovering/Resolving]
